FAERS Safety Report 5350959-3 (Version None)
Quarter: 2007Q2

REPORT INFORMATION
  Report Type: 
  Country: None (occurrence: None)
  Receive Date: 20070608
  Receipt Date: 20070530
  Transmission Date: 20071010
  Serious: Yes (Hospitalization)
  Sender: FDA-Public Use
  Company Number: BR-JNJFOC-20070600550

PATIENT
  Age: 44 Year
  Sex: Female
  Weight: 68 kg

DRUGS (3)
  1. TOPAMAX [Suspect]
     Indication: MIGRAINE PROPHYLAXIS
     Route: 048
  2. NORTRIPTYLINE HCL [Concomitant]
     Dosage: NO MORE THAN 3 YEARS
     Route: 048
  3. CLONAZEPAM [Concomitant]
     Dosage: NO MORE THAN THREE YEARS
     Route: 048

REACTIONS (5)
  - HYPERTENSION [None]
  - INFARCTION [None]
  - PARALYSIS [None]
  - THROMBOSIS [None]
  - VENOUS OCCLUSION [None]
